FAERS Safety Report 4458275-9 (Version None)
Quarter: 2004Q3

REPORT INFORMATION
  Report Type: 
  Country: None (occurrence: None)
  Receive Date: 20040917
  Receipt Date: 20040204
  Transmission Date: 20050211
  Serious: Yes (Hospitalization)
  Sender: FDA-Public Use
  Company Number: US-JNJFOC-20031203550

PATIENT
  Age: 59 Year
  Sex: Female

DRUGS (2)
  1. TOPAMAX [Suspect]
     Indication: CONVULSION
     Dosage: 400 MG, IN 1 DAY, ORAL; 500 MG, IN 1 DAY, ORAL
     Route: 048
  2. MEBARAL (METHYLPHENOBARBITAL) [Concomitant]

REACTIONS (1)
  - CONVULSION [None]
